FAERS Safety Report 6844398-3 (Version None)
Quarter: 2010Q3

REPORT INFORMATION
  Report Type: 
  Country: None (occurrence: None)
  Receive Date: 20100713
  Receipt Date: 20100629
  Transmission Date: 20110219
  Serious: Yes (Hospitalization)
  Sender: FDA-Public Use
  Company Number: 014659

PATIENT
  Age: 24 Year
  Sex: Female
  Weight: 52 kg

DRUGS (5)
  1. CIMZIA [Suspect]
     Indication: CROHN'S DISEASE
     Dosage: (SUBCUTANEOUS)
     Route: 058
     Dates: start: 20100616
  2. PREDNISONE [Concomitant]
  3. IMURAN [Concomitant]
  4. PROTONIX [Concomitant]
  5. LOESTRIN 1.5/30 [Concomitant]

REACTIONS (3)
  - PORTAL VEIN THROMBOSIS [None]
  - PULMONARY THROMBOSIS [None]
  - THROMBOSIS [None]
